FAERS Safety Report 20095772 (Version 4)
Quarter: 2023Q2

REPORT INFORMATION
  Report Type: Report from Study
  Country: FR (occurrence: None)
  Receive Date: 20211122
  Receipt Date: 20230401
  Transmission Date: 20230722
  Serious: Yes (Hospitalization)
  Sender: FDA-Public Use
  Company Number: FR-ROCHE-2961168

PATIENT
  Age: 63 Year
  Sex: Female
  Weight: 54.8 kg

DRUGS (9)
  1. ATEZOLIZUMAB [Suspect]
     Active Substance: ATEZOLIZUMAB
     Indication: Soft tissue sarcoma
     Dosage: ON 06/AUG/2021, LAST ADMINISTERED DOSE.
     Route: 042
     Dates: start: 20210610
  2. COBIMETINIB [Suspect]
     Active Substance: COBIMETINIB
     Indication: Soft tissue sarcoma
     Dosage: EVERY 1 DAY(S), 21 DAYS ON / 7DAYS OFF
     Route: 048
     Dates: start: 20210610, end: 20210619
  3. COBIMETINIB [Suspect]
     Active Substance: COBIMETINIB
     Dosage: EVERY 1 DAY(S), 21 DAYS ON / 7DAYS OFF?ON 16/SEP/2021, LAST ADMINISTERED DOSE.
     Route: 048
     Dates: start: 20210709
  4. AUGMENTIN [Concomitant]
     Active Substance: AMOXICILLIN\CLAVULANATE POTASSIUM
     Indication: Pneumonia
     Route: 048
     Dates: start: 20210906, end: 202109
  5. HYDROCORTISONE [Concomitant]
     Active Substance: HYDROCORTISONE
  6. LANSOPRAZOLE [Concomitant]
     Active Substance: LANSOPRAZOLE
     Route: 048
  7. FOLIC ACID [Concomitant]
     Active Substance: FOLIC ACID
     Route: 048
  8. CALCIUM\CHOLECALCIFEROL [Concomitant]
     Active Substance: CALCIUM\CHOLECALCIFEROL
     Dosage: 1 BAG DAILY
     Route: 048
  9. AUGMENTIN [Concomitant]
     Active Substance: AMOXICILLIN\CLAVULANATE POTASSIUM
     Indication: Pneumonia
     Route: 048
     Dates: start: 20210906, end: 202109

REACTIONS (1)
  - Muscular weakness [Recovered/Resolved]

NARRATIVE: CASE EVENT DATE: 20210915
